FAERS Safety Report 23722088 (Version 2)
Quarter: 2024Q2

REPORT INFORMATION
  Report Type: Report from Study
  Country: KR (occurrence: KR)
  Receive Date: 20240409
  Receipt Date: 20240624
  Transmission Date: 20240716
  Serious: Yes (Other)
  Sender: FDA-Public Use
  Company Number: KR-KOREA IPSEN Pharma-2022-03210

PATIENT

DRUGS (5)
  1. CABOZANTINIB [Suspect]
     Active Substance: CABOZANTINIB
     Indication: Clear cell renal cell carcinoma
     Dosage: 60 MG, QD
     Route: 048
     Dates: start: 20200120, end: 20210912
  2. CABOZANTINIB [Suspect]
     Active Substance: CABOZANTINIB
     Dosage: 60 MG, QD
     Route: 048
     Dates: start: 20211018, end: 20211031
  3. CABOZANTINIB [Suspect]
     Active Substance: CABOZANTINIB
     Dosage: 40 MG, QD
     Route: 048
     Dates: start: 20211101
  4. LANSOPRAZOLE [Concomitant]
     Active Substance: LANSOPRAZOLE
     Indication: Gastritis prophylaxis
     Dosage: 15 MG, QD
     Route: 048
     Dates: start: 20200120
  5. Centirex silver advance [Concomitant]
     Indication: Prophylaxis
     Dosage: 1 {DF}, QD
     Route: 048
     Dates: start: 20190819

REACTIONS (9)
  - Chronic kidney disease [Recovering/Resolving]
  - Blood creatinine increased [Recovered/Resolved]
  - Constipation [Recovered/Resolved]
  - Generalised oedema [Recovered/Resolved]
  - Myalgia [Recovered/Resolved]
  - Dyspnoea [Recovered/Resolved]
  - Dyspepsia [Recovered/Resolved]
  - Proteinuria [Recovered/Resolved]
  - Diarrhoea [Recovered/Resolved]

NARRATIVE: CASE EVENT DATE: 20200210
